FAERS Safety Report 16965036 (Version 2)
Quarter: 2019Q4

REPORT INFORMATION
  Report Type: Spontaneous
  Country: FR (occurrence: FR)
  Receive Date: 20191028
  Receipt Date: 20191030
  Transmission Date: 20200122
  Serious: Yes (Hospitalization)
  Sender: FDA-Public Use
  Company Number: FR-MYLANLABS-2019M1101458

PATIENT
  Age: 54 Year
  Sex: Male

DRUGS (11)
  1. BETAMETHASONE. [Suspect]
     Active Substance: BETAMETHASONE
     Indication: UPPER RESPIRATORY TRACT INFECTION
     Dosage: 3 DOSAGE FORM, QD
     Route: 048
     Dates: start: 20190423, end: 20190427
  2. ESOMEPRAZOLE MYLAN 40 MG, G?LULE GASTRO-R?SISTANTE [Suspect]
     Active Substance: ESOMEPRAZOLE
     Indication: GASTROOESOPHAGEAL REFLUX DISEASE
     Dosage: 40 MILLIGRAM, QD
     Route: 048
     Dates: start: 201602
  3. ATORVASTATINE ALMUS [Suspect]
     Active Substance: ATORVASTATIN CALCIUM
     Indication: CARDIOVASCULAR EVENT PROPHYLAXIS
     Dosage: 20 MILLIGRAM, QD
     Route: 048
     Dates: start: 201602
  4. OXOMEMAZINE MYLAN [Suspect]
     Active Substance: OXOMEMAZINE
     Indication: COUGH
     Dosage: UNK (1 CAS X 3 ? 4/JOUR)
     Route: 048
     Dates: start: 20190423, end: 20190428
  5. ZOLPIDEM [Suspect]
     Active Substance: ZOLPIDEM TARTRATE
     Indication: INSOMNIA
     Dosage: PONCTUELLEMENT
     Route: 048
     Dates: start: 20180223
  6. CORGARD [Suspect]
     Active Substance: NADOLOL
     Indication: HYPERTROPHIC CARDIOMYOPATHY
     Dosage: 160 MILLIGRAM, QD
     Route: 048
     Dates: start: 201706
  7. JOSACINE                           /00273601/ [Suspect]
     Active Substance: JOSAMYCIN
     Indication: UPPER RESPIRATORY TRACT INFECTION
     Dosage: 2000 MILLIGRAM, QD
     Route: 048
     Dates: start: 20190423, end: 20190429
  8. ELIQUIS [Suspect]
     Active Substance: APIXABAN
     Indication: CEREBROVASCULAR ACCIDENT PROPHYLAXIS
     Dosage: 10 MILLIGRAM, QD
     Route: 048
     Dates: start: 201602
  9. FUROSEMIDE MYLAN 40 MG, COMPRIM? S?CABLE [Suspect]
     Active Substance: FUROSEMIDE
     Indication: OEDEMA DUE TO CARDIAC DISEASE
     Dosage: 40 MILLIGRAM, QD
     Route: 048
     Dates: start: 201602
  10. DESLORATADINE MYLAN 5 MG, COMPRIM? PELLICUL? [Suspect]
     Active Substance: DESLORATADINE
     Indication: RHINITIS ALLERGIC
     Dosage: 5 MILLIGRAM, QD
     Route: 048
     Dates: start: 201602
  11. JANUMET [Suspect]
     Active Substance: METFORMIN HYDROCHLORIDE\SITAGLIPTIN PHOSPHATE
     Indication: TYPE 2 DIABETES MELLITUS
     Dosage: 2 DOSAGE FORM, QD
     Route: 048
     Dates: start: 201602, end: 20190504

REACTIONS (1)
  - Lipase increased [Recovering/Resolving]

NARRATIVE: CASE EVENT DATE: 20190504
